FAERS Safety Report 11096471 (Version 1)
Quarter: 2015Q2

REPORT INFORMATION
  Report Type: Spontaneous
  Country: GB (occurrence: GB)
  Receive Date: 20150507
  Receipt Date: 20150507
  Transmission Date: 20150821
  Serious: Yes (Other)
  Sender: FDA-Public Use
  Company Number: GB-TEVA-479035ISR

PATIENT
  Sex: Female

DRUGS (1)
  1. LOPERAMIDE [Suspect]
     Active Substance: LOPERAMIDE
     Dosage: 200 MILLIGRAM DAILY;
     Route: 065
     Dates: start: 201307

REACTIONS (9)
  - Drug dependence [Unknown]
  - Tremor [Unknown]
  - Intentional overdose [Unknown]
  - Insomnia [Unknown]
  - Drug ineffective [Unknown]
  - Abdominal discomfort [Unknown]
  - Nausea [Unknown]
  - Drug withdrawal syndrome [Unknown]
  - Anxiety [Unknown]
